FAERS Safety Report 10866290 (Version 2)
Quarter: 2015Q2

REPORT INFORMATION
  Report Type: Spontaneous
  Country: GB (occurrence: GB)
  Receive Date: 20150225
  Receipt Date: 20150512
  Transmission Date: 20150821
  Serious: Yes (Life-Threatening, Hospitalization, Other)
  Sender: FDA-Public Use
  Company Number: GB-ABBVIE-15K-167-1345695-00

PATIENT
  Age: 45 Year
  Sex: Male
  Weight: 80 kg

DRUGS (1)
  1. HUMIRA [Suspect]
     Active Substance: ADALIMUMAB
     Indication: PSORIASIS
     Route: 065
     Dates: start: 201406, end: 201501

REACTIONS (6)
  - Respiratory failure [Unknown]
  - Malaise [Recovering/Resolving]
  - Hepatic failure [Unknown]
  - Renal failure [Unknown]
  - Pulmonary tuberculosis [Recovering/Resolving]
  - Pneumonia legionella [Recovered/Resolved]

NARRATIVE: CASE EVENT DATE: 201501
